FAERS Safety Report 4491176-9 (Version None)
Quarter: 2004Q3

REPORT INFORMATION
  Report Type: 
  Country: None (occurrence: None)
  Receive Date: 20040927
  Receipt Date: 20040803
  Transmission Date: 20050211
  Serious: No
  Sender: FDA-Public Use
  Company Number: USA040874432

PATIENT
  Age: 50 Year
  Sex: Female

DRUGS (5)
  1. STRATTERA [Suspect]
     Indication: ATTENTION DEFICIT/HYPERACTIVITY DISORDER
     Dosage: 40 MG DAY
     Dates: start: 20040727, end: 20040801
  2. PAXIL [Concomitant]
  3. CALRITIN (LORATADINE) [Concomitant]
  4. MULTI-VITAMIN [Concomitant]
  5. ZYRTEC [Concomitant]

REACTIONS (2)
  - PRURITUS [None]
  - URTICARIA [None]
